FAERS Safety Report 18579914 (Version 1)
Quarter: 2020Q4

REPORT INFORMATION
  Report Type: Spontaneous
  Country: JP (occurrence: JP)
  Receive Date: 20201204
  Receipt Date: 20201204
  Transmission Date: 20210114
  Serious: Yes (Death, Other)
  Sender: FDA-Public Use
  Company Number: JP-OTSUKA-2020_015465AA

PATIENT
  Age: 64 Year
  Sex: Male

DRUGS (3)
  1. SAMSCA [Suspect]
     Active Substance: TOLVAPTAN
     Indication: ASCITES
  2. SAMSCA [Suspect]
     Active Substance: TOLVAPTAN
     Indication: HEPATIC CIRRHOSIS
     Dosage: 7.5 MG, QD
     Route: 048
     Dates: start: 20180601, end: 20180605
  3. SAMSCA [Suspect]
     Active Substance: TOLVAPTAN
     Indication: OEDEMA DUE TO HEPATIC DISEASE

REACTIONS (2)
  - Hypernatraemia [Fatal]
  - Multiple organ dysfunction syndrome [Fatal]

NARRATIVE: CASE EVENT DATE: 20180606
